FAERS Safety Report 9323892 (Version 1)
Quarter: 2013Q2

REPORT INFORMATION
  Report Type: Spontaneous
  Country: KR (occurrence: KR)
  Receive Date: 20130603
  Receipt Date: 20130603
  Transmission Date: 20140414
  Serious: Yes (Other)
  Sender: FDA-Public Use
  Company Number: KR-ASTELLAS-2013JP006267

PATIENT
  Age: 56 Year
  Sex: Female

DRUGS (5)
  1. PROGRAF [Suspect]
     Indication: IMMUNOSUPPRESSION
     Dosage: UNK
     Route: 048
  2. MYCOPHENOLATE MOFETIL [Suspect]
     Indication: IMMUNOSUPPRESSION
     Dosage: UNK
     Route: 048
  3. METHYLON                           /00049601/ [Concomitant]
     Route: 048
  4. WARFARIN [Concomitant]
     Indication: ANTICOAGULANT THERAPY
     Dosage: UNK
     Route: 048
  5. MEDICINE FOR BLOOD CIRCULATION [Concomitant]
     Dosage: UNK
     Route: 048

REACTIONS (5)
  - Splenectomy [Recovered/Resolved]
  - Headache [Recovering/Resolving]
  - Cough [Recovering/Resolving]
  - Diabetes mellitus [Recovered/Resolved]
  - Blood pressure increased [Recovered/Resolved]
